FAERS Safety Report 9270002 (Version 1)
Quarter: 2013Q2

REPORT INFORMATION
  Report Type: Spontaneous
  Country: AU (occurrence: AU)
  Receive Date: 20130503
  Receipt Date: 20130503
  Transmission Date: 20140414
  Serious: Yes (Hospitalization)
  Sender: FDA-Public Use
  Company Number: AU-PFIZER INC-2013132844

PATIENT
  Age: 69 Year
  Sex: Female

DRUGS (2)
  1. CHLORAMPHENICOL [Suspect]
     Dosage: UNK
     Route: 061
  2. VANCOMYCIN HCL [Suspect]
     Dosage: UNK

REACTIONS (2)
  - Dermatitis contact [Recovered/Resolved]
  - Red man syndrome [Recovered/Resolved]
